FAERS Safety Report 8905582 (Version 1)
Quarter: 2012Q4

REPORT INFORMATION
  Report Type: 
  Country: US (occurrence: US)
  Receive Date: 20121113
  Receipt Date: 20121113
  Transmission Date: 20130627
  Serious: Yes (Hospitalization)
  Sender: FDA-Public Use
  Company Number: US-WATSON-2012-19029

PATIENT
  Age: 54 Year
  Sex: Female

DRUGS (2)
  1. ESTRADIOL [Suspect]
     Indication: HORMONE REPLACEMENT THERAPY
     Dosage: 0.5 mg, daily
     Route: 065
  2. BISACODYL [Suspect]
     Indication: CONSTIPATION
     Dosage: UNK, unknown
     Route: 048

REACTIONS (1)
  - Colitis ischaemic [Recovered/Resolved]
